FAERS Safety Report 12479879 (Version 1)
Quarter: 2016Q2

REPORT INFORMATION
  Report Type: Report from Study
  Country: JP (occurrence: JP)
  Receive Date: 20160620
  Receipt Date: 20160620
  Transmission Date: 20160815
  Serious: Yes (Hospitalization, Other)
  Sender: FDA-Public Use
  Company Number: JP-FERRINGPH-2016FE02653

PATIENT

DRUGS (7)
  1. DEGARELIX [Suspect]
     Active Substance: DEGARELIX
     Dosage: 240 MG, ONCE/SINGLE
     Route: 058
     Dates: start: 20130221, end: 20130221
  2. ESTRACYT                           /00327002/ [Concomitant]
     Active Substance: ESTRAMUSTINE PHOSPHATE SODIUM
     Indication: PROSTATE CANCER
     Dosage: 313.4 MG, DAILY
     Route: 048
     Dates: start: 20140221, end: 20140514
  3. TRANSAMIN [Concomitant]
     Active Substance: TRANEXAMIC ACID
     Indication: PALLIATIVE CARE
  4. DEGARELIX [Suspect]
     Active Substance: DEGARELIX
     Indication: PROSTATE CANCER
     Dosage: 80 MG, MONTHLY
     Route: 058
     Dates: start: 20130321, end: 20140417
  5. CASODEX [Concomitant]
     Active Substance: BICALUTAMIDE
     Dosage: UNK
     Route: 048
     Dates: start: 20130221, end: 20140220
  6. URIEF [Concomitant]
     Active Substance: SILODOSIN
     Dosage: UNK
     Route: 048
     Dates: start: 20130530, end: 20140514
  7. TRANSAMIN [Concomitant]
     Active Substance: TRANEXAMIC ACID
     Indication: PROSTATIC HAEMORRHAGE
     Dosage: 750 MG, DAILY
     Route: 048
     Dates: start: 20131204, end: 20140514

REACTIONS (6)
  - Prostatic haemorrhage [Recovering/Resolving]
  - Prostatic specific antigen increased [Unknown]
  - Metastases to bone [Unknown]
  - Prostatic specific antigen decreased [Unknown]
  - Hepatocellular carcinoma [Unknown]
  - Compression fracture [Unknown]

NARRATIVE: CASE EVENT DATE: 2013
